FAERS Safety Report 4603315-7 (Version None)
Quarter: 2005Q1

REPORT INFORMATION
  Report Type: 
  Country: None (occurrence: None)
  Receive Date: 20050307
  Receipt Date: 20050221
  Transmission Date: 20050727
  Serious: Yes (Other)
  Sender: FDA-Public Use
  Company Number: 2005033649

PATIENT
  Age: 34 Year
  Sex: Female

DRUGS (1)
  1. CARDYL (ATORVASTATIN) [Suspect]
     Indication: HYPERCHOLESTEROLAEMIA
     Dosage: 20 MG (20 MG, 1 IN 1 D), ORAL
     Route: 048

REACTIONS (1)
  - WEIGHT DECREASED [None]
